FAERS Safety Report 19452830 (Version 1)
Quarter: 2021Q2

REPORT INFORMATION
  Report Type: Spontaneous
  Country: US (occurrence: GB)
  Receive Date: 20210623
  Receipt Date: 20210623
  Transmission Date: 20210717
  Serious: Yes (Hospitalization, Other)
  Sender: FDA-Public Use
  Company Number: US-VERTEX PHARMACEUTICALS-2021-000601

PATIENT
  Sex: Female

DRUGS (1)
  1. KAFTRIO [Suspect]
     Active Substance: ELEXACAFTOR\IVACAFTOR\TEZACAFTOR
     Indication: CYSTIC FIBROSIS
     Dosage: UNK
     Route: 048

REACTIONS (9)
  - Dyskinesia [Unknown]
  - Transient ischaemic attack [Unknown]
  - Dizziness [Unknown]
  - Memory impairment [Unknown]
  - Vertigo [Unknown]
  - Vomiting [Unknown]
  - Headache [Unknown]
  - Tic [Unknown]
  - Muscle twitching [Unknown]

NARRATIVE: CASE EVENT DATE: 2021
